FAERS Safety Report 4681918-1 (Version None)
Quarter: 2005Q2

REPORT INFORMATION
  Report Type: 
  Country: None (occurrence: None)
  Receive Date: 20050602
  Receipt Date: 20050518
  Transmission Date: 20051028
  Serious: Yes (Death, Hospitalization)
  Sender: FDA-Public Use
  Company Number: 2004EU002117

PATIENT
  Age: 53 Year
  Sex: Male

DRUGS (2)
  1. FK506 (TACROLIMUS CAPSULES) [Suspect]
     Indication: LIVER TRANSPLANT
     Dosage: 0.00 MG,
     Dates: start: 20041014, end: 20041017
  2. FK506 (TACROLIMUS CAPSULES) [Suspect]
     Indication: LIVER TRANSPLANT
     Dosage: 0.00 MG,
     Dates: start: 20041018

REACTIONS (4)
  - BILE DUCT STENOSIS [None]
  - HEPATITIS C [None]
  - LIVER TRANSPLANT REJECTION [None]
  - THROMBOPHLEBITIS [None]
